FAERS Safety Report 7385687-6 (Version None)
Quarter: 2011Q1

REPORT INFORMATION
  Report Type: 
  Country: None (occurrence: None)
  Receive Date: 20110331
  Receipt Date: 20110325
  Transmission Date: 20110831
  Serious: No
  Sender: FDA-Public Use
  Company Number: US-BIOGENIDEC-2011BI011611

PATIENT
  Sex: Male

DRUGS (2)
  1. AVONEX [Suspect]
     Indication: MULTIPLE SCLEROSIS
     Route: 030
     Dates: start: 20040928, end: 20070426
  2. AVONEX [Suspect]
     Route: 030

REACTIONS (3)
  - GAIT DISTURBANCE [None]
  - MULTIPLE SCLEROSIS [None]
  - DRUG INEFFECTIVE [None]
